FAERS Safety Report 8423391 (Version 3)
Quarter: 2017Q1

REPORT INFORMATION
  Report Type: Spontaneous
  Country: US (occurrence: US)
  Receive Date: 20120223
  Receipt Date: 20170228
  Transmission Date: 20170429
  Serious: Yes (Other)
  Sender: FDA-Public Use
  Company Number: US-ASTRAZENECA-2012SE10473

PATIENT
  Age: 79 Year
  Sex: Female

DRUGS (3)
  1. ARIMIDEX [Suspect]
     Active Substance: ANASTROZOLE
     Route: 048
  2. SYMBICORT [Suspect]
     Active Substance: BUDESONIDE\FORMOTEROL FUMARATE DIHYDRATE
     Dosage: 160/4.5 UG TWO PUFFS TWICE A DAY
     Route: 055
  3. CRESTOR [Suspect]
     Active Substance: ROSUVASTATIN CALCIUM
     Route: 048

REACTIONS (10)
  - Feeling cold [Unknown]
  - Speech disorder [Unknown]
  - Neoplasm malignant [Unknown]
  - Tooth disorder [Unknown]
  - Memory impairment [Unknown]
  - Cardiovascular disorder [Unknown]
  - Hypoacusis [Unknown]
  - Poor quality sleep [Unknown]
  - Confusional state [Unknown]
  - Sudden onset of sleep [Unknown]
